FAERS Safety Report 11664480 (Version 1)
Quarter: 2015Q4

REPORT INFORMATION
  Report Type: Spontaneous
  Country: US (occurrence: None)
  Receive Date: 20151026
  Receipt Date: 20151026
  Transmission Date: 20160304
  Serious: No
  Sender: FDA-Public Use
  Company Number: None

PATIENT
  Age: 49 Year
  Sex: Female
  Weight: 56.7 kg

DRUGS (7)
  1. METFORMIN [Concomitant]
     Active Substance: METFORMIN HYDROCHLORIDE
  2. PRAVASTATIN [Concomitant]
     Active Substance: PRAVASTATIN\PRAVASTATIN SODIUM
  3. LORSARTIN [Concomitant]
  4. TOPAMAX [Concomitant]
     Active Substance: TOPIRAMATE
  5. COQ10 [Concomitant]
     Active Substance: UBIDECARENONE
  6. GLIMEPORIDE [Concomitant]
  7. LEVAQUIN [Suspect]
     Active Substance: LEVOFLOXACIN
     Indication: SINUSITIS
     Dosage: 1 PILL PER DAY FOR 10 DAYS
     Route: 048

REACTIONS (2)
  - Muscle spasms [None]
  - Diabetic neuropathy [None]

NARRATIVE: CASE EVENT DATE: 20150810
